FAERS Safety Report 23197108 (Version 1)
Quarter: 2023Q4

REPORT INFORMATION
  Report Type: Spontaneous
  Country: RU (occurrence: None)
  Receive Date: 20231117
  Receipt Date: 20231117
  Transmission Date: 20240110
  Serious: Yes (Other)
  Sender: FDA-Public Use
  Company Number: 2023A259801

PATIENT
  Age: 6209 Day
  Sex: Female

DRUGS (1)
  1. SELUMETINIB [Suspect]
     Active Substance: SELUMETINIB
     Route: 048
     Dates: start: 20230501

REACTIONS (1)
  - Ejection fraction decreased [Unknown]
